FAERS Safety Report 10958040 (Version 2)
Quarter: 2015Q2

REPORT INFORMATION
  Report Type: Spontaneous
  Country: DE (occurrence: DE)
  Receive Date: 20150326
  Receipt Date: 20150508
  Transmission Date: 20150821
  Serious: Yes (Other)
  Sender: FDA-Public Use
  Company Number: DE-ASTRAZENECA-2015SE27183

PATIENT
  Age: 74 Year
  Weight: 95 kg

DRUGS (2)
  1. ONGLYZA [Suspect]
     Active Substance: SAXAGLIPTIN HYDROCHLORIDE
     Route: 048
  2. XIGDUO XR [Suspect]
     Active Substance: DAPAGLIFLOZIN PROPANEDIOL\METFORMIN HYDROCHLORIDE
     Route: 048
     Dates: start: 20140701, end: 20140930

REACTIONS (3)
  - Haematuria [Not Recovered/Not Resolved]
  - Drug ineffective [Unknown]
  - Bladder cancer [Unknown]

NARRATIVE: CASE EVENT DATE: 201407
